FAERS Safety Report 6768825-5 (Version None)
Quarter: 2010Q2

REPORT INFORMATION
  Report Type: 
  Country: None (occurrence: None)
  Receive Date: 20100611
  Receipt Date: 20100601
  Transmission Date: 20101027
  Serious: Yes (Other)
  Sender: FDA-Public Use
  Company Number: 1000014212

PATIENT
  Age: 15 Year
  Sex: Female

DRUGS (3)
  1. CARBAMAZEPINE [Suspect]
     Dosage: 10 MG/KG (10MG/K G, 1 IN 1 D)
  2. VALPROIC ACID [Suspect]
     Dosage: 25 MG/KG (25 MG/KG, 1 IN 1 D)
  3. CLOBAZAM [Suspect]
     Dosage: 0.7 MG/KG (0.7 MG/KG, 1 IN 1 D)

REACTIONS (1)
  - FANCONI SYNDROME [None]
